FAERS Safety Report 24752962 (Version 1)
Quarter: 2024Q4

REPORT INFORMATION
  Report Type: Spontaneous
  Country: US (occurrence: US)
  Receive Date: 20241219
  Receipt Date: 20241219
  Transmission Date: 20250115
  Serious: Yes (Hospitalization, Other)
  Sender: Steriscience PTE
  Company Number: US-STERISCIENCE B.V.-2024-ST-001604

PATIENT
  Age: 54 Year
  Sex: Male

DRUGS (14)
  1. PIPERACILLIN SODIUM\TAZOBACTAM SODIUM [Suspect]
     Active Substance: PIPERACILLIN SODIUM\TAZOBACTAM SODIUM
     Indication: Evidence based treatment
     Dosage: UNK
     Route: 065
  2. PIPERACILLIN SODIUM\TAZOBACTAM SODIUM [Suspect]
     Active Substance: PIPERACILLIN SODIUM\TAZOBACTAM SODIUM
     Indication: Septic shock
  3. VANCOMYCIN [Suspect]
     Active Substance: VANCOMYCIN
     Indication: Evidence based treatment
     Dosage: UNK
     Route: 065
  4. VANCOMYCIN [Suspect]
     Active Substance: VANCOMYCIN
     Indication: Septic shock
  5. CEFEPIME [Suspect]
     Active Substance: CEFEPIME HYDROCHLORIDE
     Indication: Gonococcal infection
     Dosage: UNK
     Route: 065
  6. METRONIDAZOLE [Suspect]
     Active Substance: METRONIDAZOLE
     Indication: Gonococcal infection
     Dosage: UNK
     Route: 065
  7. CEFTRIAXONE [Suspect]
     Active Substance: CEFTRIAXONE
     Indication: Gonococcal infection
     Dosage: UNK
     Route: 065
  8. GENTAMICIN [Concomitant]
     Active Substance: GENTAMICIN
     Indication: Gonococcal infection
     Dosage: UNK
     Route: 065
  9. GENTAMICIN [Concomitant]
     Active Substance: GENTAMICIN
     Indication: Evidence based treatment
  10. GENTAMICIN [Concomitant]
     Active Substance: GENTAMICIN
     Indication: Chlamydial infection
  11. DOXYCYCLINE [Concomitant]
     Active Substance: DOXYCYCLINE
     Indication: Gonococcal infection
     Dosage: UNK
     Route: 065
  12. DOXYCYCLINE [Concomitant]
     Active Substance: DOXYCYCLINE
     Indication: Evidence based treatment
  13. DOXYCYCLINE [Concomitant]
     Active Substance: DOXYCYCLINE
     Indication: Chlamydial infection
  14. HUMAN PLASMA [Concomitant]
     Active Substance: HUMAN PLASMA
     Indication: Multiple organ dysfunction syndrome
     Dosage: THERAPEUTIC PLASMA EXCHANGE
     Route: 065

REACTIONS (2)
  - Condition aggravated [Unknown]
  - Drug ineffective [Unknown]
